FAERS Safety Report 17727384 (Version 2)
Quarter: 2020Q2

REPORT INFORMATION
  Report Type: Spontaneous
  Country: PT (occurrence: PT)
  Receive Date: 20200430
  Receipt Date: 20200511
  Transmission Date: 20200714
  Serious: Yes (Other)
  Sender: FDA-Public Use
  Company Number: PT-ACCORD-180157

PATIENT
  Age: 61 Year
  Sex: Female
  Weight: 72 kg

DRUGS (10)
  1. AMINOPHYLLINE. [Concomitant]
     Active Substance: AMINOPHYLLINE
  2. CARBOPLATIN ACCORD [Suspect]
     Active Substance: CARBOPLATIN
     Indication: LUNG ADENOCARCINOMA
     Dosage: CYCLES OF 21/21 DAYS
     Route: 042
     Dates: start: 20200325, end: 20200325
  3. DIAZEPAM. [Concomitant]
     Active Substance: DIAZEPAM
     Dosage: SOS
  4. DEXAMETHASONE. [Concomitant]
     Active Substance: DEXAMETHASONE
  5. SERTRALINE [Concomitant]
     Active Substance: SERTRALINE HYDROCHLORIDE
  6. FLUTICASONE/SALMETEROL [Concomitant]
     Active Substance: FLUTICASONE PROPIONATE\SALMETEROL XINAFOATE
  7. PEMETREXED. [Concomitant]
     Active Substance: PEMETREXED
     Route: 042
     Dates: start: 20200325
  8. ONDANSETRON [Concomitant]
     Active Substance: ONDANSETRON
  9. ALPRAZOLAM. [Concomitant]
     Active Substance: ALPRAZOLAM
  10. ZOLPIDEM [Concomitant]
     Active Substance: ZOLPIDEM TARTRATE

REACTIONS (3)
  - Angioedema [Recovered/Resolved]
  - Erythema [Recovered/Resolved]
  - Nausea [Recovered/Resolved]

NARRATIVE: CASE EVENT DATE: 20200325
